FAERS Safety Report 24793592 (Version 3)
Quarter: 2025Q1

REPORT INFORMATION
  Report Type: Spontaneous
  Country: US (occurrence: US)
  Receive Date: 20241231
  Receipt Date: 20250207
  Transmission Date: 20250408
  Serious: Yes (Death, Hospitalization)
  Sender: PFIZER
  Company Number: US-PFIZER INC-202400332566

PATIENT
  Age: 89 Year
  Sex: Male
  Weight: 68.027 kg

DRUGS (44)
  1. VYNDAMAX [Suspect]
     Active Substance: TAFAMIDIS
     Indication: Cardiac amyloidosis
     Dosage: 61 MG, 1X/DAY
     Route: 048
     Dates: start: 202312, end: 202412
  2. VYNDAMAX [Suspect]
     Active Substance: TAFAMIDIS
     Indication: Cardiac failure congestive
     Dosage: 61 MG, DAILY
  3. TORSEMIDE [Concomitant]
     Active Substance: TORSEMIDE
     Indication: Fluid retention
     Dosage: 80 MG, 2X/DAY
  4. TORSEMIDE [Concomitant]
     Active Substance: TORSEMIDE
     Indication: Cardiac failure congestive
     Dosage: 120 MG, 2X/DAY
  5. TORSEMIDE [Concomitant]
     Active Substance: TORSEMIDE
     Indication: Oedema
  6. SPIRONOLACTONE [Concomitant]
     Active Substance: SPIRONOLACTONE
     Indication: Cardiac failure
     Dosage: 25 MG, DAILY (ON TUESDAY, THURSDAY, SATURDAY)
  7. SPIRONOLACTONE [Concomitant]
     Active Substance: SPIRONOLACTONE
     Indication: Oedema
     Dosage: 25 MG, 1X/DAY [ONCE DAILY ON TUESDAY, THURSDAY, SATURDAY]
  8. SPIRONOLACTONE [Concomitant]
     Active Substance: SPIRONOLACTONE
     Indication: Cardiac failure congestive
  9. TAMSULOSIN [Concomitant]
     Active Substance: TAMSULOSIN
     Indication: Benign prostatic hyperplasia
     Dosage: 0.4 MG, 2X/DAY
  10. ELIQUIS [Concomitant]
     Active Substance: APIXABAN
     Indication: Anticoagulant therapy
     Dosage: 2.5 MG, 2X/DAY
     Route: 048
     Dates: start: 20240613, end: 20241212
  11. ELIQUIS [Concomitant]
     Active Substance: APIXABAN
     Indication: Atrial fibrillation
  12. XARELTO [Concomitant]
     Active Substance: RIVAROXABAN
     Dosage: 15 MG, DAILY
  13. FEBUXOSTAT [Concomitant]
     Active Substance: FEBUXOSTAT
     Indication: Rheumatoid arthritis
     Dosage: 80 MG, DAILY
  14. FEBUXOSTAT [Concomitant]
     Active Substance: FEBUXOSTAT
     Indication: Gout
  15. PREDNISONE [Concomitant]
     Active Substance: PREDNISONE
     Indication: Giant cell arteritis
     Dosage: 3 MG, DAILY (SMALL DOSE;SLOW TAPER)
  16. PREDNISONE [Concomitant]
     Active Substance: PREDNISONE
     Indication: Rheumatoid arthritis
     Dosage: 3 MG, 1X/DAY [TAPER]
  17. PREDNISONE [Concomitant]
     Active Substance: PREDNISONE
     Indication: Polymyalgia rheumatica
  18. LASIX [Concomitant]
     Active Substance: FUROSEMIDE
     Route: 042
  19. MIDODRINE [Concomitant]
     Active Substance: MIDODRINE
     Indication: Hypertension
     Dosage: 5 MG, 3X/DAY
  20. POTASSIUM [Concomitant]
     Active Substance: POTASSIUM
     Indication: Hypokalaemia
     Dosage: 20 MEQ, 2X/DAY
  21. MORNIFLUMATE [Concomitant]
     Active Substance: MORNIFLUMATE
     Indication: Benign prostatic hyperplasia
  22. VITAMIN B1 [Concomitant]
     Active Substance: THIAMINE HYDROCHLORIDE
     Indication: Nutritional supplementation
     Dosage: 100 MG, 1X/DAY
  23. VITAMIN D3 [Concomitant]
     Active Substance: CHOLECALCIFEROL
     Indication: Nutritional supplementation
     Dosage: 5000 IU, 1X/DAY
  24. RETINOL [Concomitant]
     Active Substance: RETINOL
     Indication: Visual impairment
     Dosage: 1 DF, 1X/DAY
  25. VITAMIN C [Concomitant]
     Active Substance: ASCORBIC ACID
     Indication: Visual impairment
     Dosage: 1 DF, 1X/DAY
  26. VITAMIN E [Concomitant]
     Active Substance: .ALPHA.-TOCOPHEROL
     Indication: Visual impairment
     Dosage: 1 DF, 1X/DAY
  27. TYLENOL [Concomitant]
     Active Substance: ACETAMINOPHEN
     Indication: Pain
  28. ALBUTEROL [Concomitant]
     Active Substance: ALBUTEROL
     Indication: Chronic obstructive pulmonary disease
     Dosage: 2.5 MG, 2X/DAY [NEBULIZER/2 TIMES DAILY]
  29. ALBUTEROL [Concomitant]
     Active Substance: ALBUTEROL
     Indication: Dyspnoea
  30. ALBUTEROL [Concomitant]
     Active Substance: ALBUTEROL
     Indication: Wheezing
  31. AZELASTINE [Concomitant]
     Active Substance: AZELASTINE
     Indication: Eye disorder
     Dosage: 18 ML, 2X/DAY
  32. CYANOCOBALAMIN [Concomitant]
     Active Substance: CYANOCOBALAMIN
     Indication: Nutritional supplementation
     Dosage: 1000 UG, 1X/DAY
  33. DICLOFENAC [Concomitant]
     Active Substance: DICLOFENAC
     Indication: Pain
     Dosage: 2 G, 3X/DAY
  34. ULORIC [Concomitant]
     Active Substance: FEBUXOSTAT
     Indication: Rheumatoid arthritis
     Dosage: 40 MG, 3X/DAY
  35. ULORIC [Concomitant]
     Active Substance: FEBUXOSTAT
     Indication: Giant cell arteritis
  36. ULORIC [Concomitant]
     Active Substance: FEBUXOSTAT
     Indication: Polymyalgia rheumatica
  37. BREO ELLIPTA [Concomitant]
     Active Substance: FLUTICASONE FUROATE\VILANTEROL TRIFENATATE
     Indication: Chronic obstructive pulmonary disease
     Dosage: 100-25 UG [1 PUFF DAILY]
  38. BREO ELLIPTA [Concomitant]
     Active Substance: FLUTICASONE FUROATE\VILANTEROL TRIFENATATE
     Indication: Dyspnoea
  39. FOLIC ACID [Concomitant]
     Active Substance: FOLIC ACID
     Indication: Anaemia
     Dosage: 800 UG, 2X/DAY
  40. METOLAZONE [Concomitant]
     Active Substance: METOLAZONE
     Indication: Oedema
  41. METOLAZONE [Concomitant]
     Active Substance: METOLAZONE
     Indication: Cardiac failure congestive
  42. MUCINEX [Concomitant]
     Active Substance: GUAIFENESIN
     Indication: Nasal congestion
     Dosage: 600 MG, 2X/DAY
  43. CINNAMON [Concomitant]
     Active Substance: CINNAMON
     Indication: Nutritional supplementation
     Dosage: 1200 MG, 1X/DAY
  44. CRANBERRY [Concomitant]
     Active Substance: CRANBERRY
     Indication: Nutritional supplementation
     Dosage: UNK, 1X/DAY

REACTIONS (8)
  - Aortic valve disease [Fatal]
  - Pulmonary oedema [Fatal]
  - Cardiac failure congestive [Fatal]
  - Cardiac amyloidosis [Fatal]
  - Disease progression [Fatal]
  - Hypotension [Unknown]
  - Gout [Unknown]
  - Chronic obstructive pulmonary disease [Unknown]

NARRATIVE: CASE EVENT DATE: 20240224
